FAERS Safety Report 15045003 (Version 1)
Quarter: 2018Q2

REPORT INFORMATION
  Report Type: Spontaneous
  Country: US (occurrence: US)
  Receive Date: 20180601
  Receipt Date: 20180601
  Transmission Date: 20180711
  Serious: No
  Sender: FDA-Public Use
  Company Number: None

PATIENT
  Age: 27 Year
  Sex: Female

DRUGS (2)
  1. MAKENA [Suspect]
     Active Substance: HYDROXYPROGESTERONE CAPROATE
     Indication: PREMATURE LABOUR
     Dosage: OTHER
     Route: 030
     Dates: start: 20180507, end: 20180601
  2. PRENATAL VITAMIN [Concomitant]
     Active Substance: VITAMINS

REACTIONS (3)
  - Dizziness [None]
  - Injection site pain [None]
  - Headache [None]

NARRATIVE: CASE EVENT DATE: 20180601
